FAERS Safety Report 21909818 (Version 1)
Quarter: 2023Q1

REPORT INFORMATION
  Report Type: Spontaneous
  Country: US (occurrence: US)
  Receive Date: 20230125
  Receipt Date: 20230125
  Transmission Date: 20230417
  Serious: No
  Sender: FDA-Public Use
  Company Number: US-PFIZER INC-202300034317

PATIENT
  Age: 60 Year
  Sex: Female

DRUGS (9)
  1. PAXLOVID [Suspect]
     Active Substance: NIRMATRELVIR\RITONAVIR
     Indication: COVID-19 treatment
     Dosage: UNK
     Dates: start: 20230112, end: 20230116
  2. NORTRIPTYLINE [Concomitant]
     Active Substance: NORTRIPTYLINE
     Dosage: UNK
  3. LISINOPRIL [Concomitant]
     Active Substance: LISINOPRIL
     Dosage: UNK
  4. LEVOTHYROXINE [Concomitant]
     Active Substance: LEVOTHYROXINE
     Dosage: UNK
  5. HYDROXYCHLOROQUINE [Concomitant]
     Active Substance: HYDROXYCHLOROQUINE
     Dosage: UNK
  6. MAGNESIUM [Concomitant]
     Active Substance: MAGNESIUM
  7. RIBOFLAVIN [Concomitant]
     Active Substance: RIBOFLAVIN
     Dosage: UNK
  8. NARATRIPTAN [Concomitant]
     Active Substance: NARATRIPTAN HYDROCHLORIDE
     Dosage: UNK
  9. OTEZLA [Concomitant]
     Active Substance: APREMILAST

REACTIONS (2)
  - COVID-19 [Not Recovered/Not Resolved]
  - Disease recurrence [Not Recovered/Not Resolved]

NARRATIVE: CASE EVENT DATE: 20230122
